FAERS Safety Report 9442836 (Version 4)
Quarter: 2013Q4

REPORT INFORMATION
  Report Type: Report from Study
  Country: ES (occurrence: ES)
  Receive Date: 20130806
  Receipt Date: 20131205
  Transmission Date: 20140711
  Serious: Yes (Other)
  Sender: FDA-Public Use
  Company Number: ES-ROCHE-1256779

PATIENT
  Age: 43 Year
  Sex: Female

DRUGS (7)
  1. PEG-INTERFERON ALFA 2A [Suspect]
     Indication: HEPATITIS C
     Route: 058
     Dates: start: 20120608, end: 20130510
  2. RIBAVIRIN [Suspect]
     Indication: HEPATITIS C
     Route: 048
     Dates: start: 20120608, end: 20130510
  3. RIBAVIRIN [Suspect]
     Route: 048
     Dates: start: 20120903
  4. RIBAVIRIN [Suspect]
     Route: 048
     Dates: start: 20120807
  5. BOCEPREVIR [Suspect]
     Indication: HEPATITIS C
     Dosage: 2400 MG DAILY
     Route: 048
     Dates: start: 20120707
  6. INSULIN GLULISINE [Concomitant]
  7. LANTUS [Concomitant]

REACTIONS (5)
  - Pancytopenia [Recovered/Resolved]
  - Leukopenia [Recovered/Resolved]
  - Neutropenia [Recovered/Resolved]
  - Bicytopenia [Recovered/Resolved]
  - Anaemia [Recovered/Resolved]
